FAERS Safety Report 23766898 (Version 2)
Quarter: 2024Q2

REPORT INFORMATION
  Report Type: Spontaneous
  Country: JP (occurrence: JP)
  Receive Date: 20240422
  Receipt Date: 20240503
  Transmission Date: 20240716
  Serious: No
  Sender: FDA-Public Use
  Company Number: JP-JNJFOC-20240454764

PATIENT
  Sex: Male

DRUGS (1)
  1. LOPERAMIDE HYDROCHLORIDE [Suspect]
     Active Substance: LOPERAMIDE HYDROCHLORIDE
     Indication: Diarrhoea
     Dosage: DOSE UNKNOWN
     Route: 048
     Dates: start: 2023

REACTIONS (1)
  - Abdominal discomfort [Recovered/Resolved]
